FAERS Safety Report 8902608 (Version 1)
Quarter: 2012Q4

REPORT INFORMATION
  Report Type: 
  Country: SE (occurrence: SE)
  Receive Date: 20121112
  Receipt Date: 20121112
  Transmission Date: 20130627
  Serious: Yes (Hospitalization)
  Sender: FDA-Public Use
  Company Number: SE-PFIZER INC-2012277488

PATIENT
  Age: 33 Year
  Sex: Male
  Weight: 65.2 kg

DRUGS (7)
  1. GENOTROPIN [Suspect]
     Dosage: 1.2 mg, 1x/day, 7 injections/week
     Route: 058
     Dates: start: 20020926
  2. LEVOTHYROXINE [Concomitant]
     Indication: TSH DECREASED
     Dosage: UNK
     Dates: start: 19970701
  3. LEVOTHYROXINE [Concomitant]
     Indication: PRIMARY HYPOTHYROIDISM
  4. TESTOSTERONE ENANTATE [Concomitant]
     Indication: LUTEINISING HORMONE DEFICIENCY
     Dosage: UNK
     Dates: start: 20010528
  5. TESTOSTERONE ENANTATE [Concomitant]
     Indication: FOLLICLE-STIMULATING HORMONE DEFICIENCY
  6. TESTOSTERONE ENANTATE [Concomitant]
     Indication: TESTICULAR HYPOGONADISM
  7. HYDROCORTISONE [Concomitant]
     Indication: ACTH DECREASED
     Dosage: UNK
     Dates: start: 20011110

REACTIONS (1)
  - Arthropathy [Unknown]
